FAERS Safety Report 7680634-1 (Version None)
Quarter: 2011Q3

REPORT INFORMATION
  Report Type: 
  Country: None (occurrence: None)
  Receive Date: 20110811
  Receipt Date: 20110811
  Transmission Date: 20111222
  Serious: No
  Sender: FDA-Public Use
  Company Number: None

PATIENT
  Age: 58 Year
  Sex: Male
  Weight: 158.7 kg

DRUGS (1)
  1. PRASUGREL [Suspect]
     Indication: CORONARY ARTERY DISEASE
     Dosage: 10 MG EVERY DAY PO
     Route: 048
     Dates: start: 20110218, end: 20110527

REACTIONS (1)
  - PAIN [None]
